FAERS Safety Report 21972584 (Version 1)
Quarter: 2023Q1

REPORT INFORMATION
  Report Type: Spontaneous
  Country: CA (occurrence: CA)
  Receive Date: 20230209
  Receipt Date: 20230209
  Transmission Date: 20230417
  Serious: Yes (Other)
  Sender: FDA-Public Use
  Company Number: CA-FreseniusKabi-FK202301407

PATIENT
  Age: 75 Year
  Sex: Male

DRUGS (1)
  1. ETOPOSIDE [Suspect]
     Active Substance: ETOPOSIDE
     Indication: Product used for unknown indication
     Dosage: DOSAGE FORM: NOT SPECIFIED
     Route: 041

REACTIONS (4)
  - Chest pain [Unknown]
  - Oxygen saturation decreased [Unknown]
  - Unresponsive to stimuli [Unknown]
  - Loss of consciousness [Unknown]
